FAERS Safety Report 6463329-1 (Version None)
Quarter: 2009Q4

REPORT INFORMATION
  Report Type: 
  Country: None (occurrence: None)
  Receive Date: 20091130
  Receipt Date: 20090709
  Transmission Date: 20100525
  Serious: Yes (Other)
  Sender: FDA-Public Use
  Company Number: US-AMGEN-QUU355047

PATIENT
  Sex: Male

DRUGS (3)
  1. ENBREL [Suspect]
     Indication: PSORIASIS
     Dates: start: 20090401
  2. VALTREX [Concomitant]
  3. TRIAMCINOLONE [Concomitant]
     Route: 061

REACTIONS (1)
  - MALIGNANT MELANOMA [None]
